FAERS Safety Report 14263839 (Version 1)
Quarter: 2017Q4

REPORT INFORMATION
  Report Type: Spontaneous
  Country: US (occurrence: US)
  Receive Date: 20171208
  Receipt Date: 20171208
  Transmission Date: 20180321
  Serious: No
  Sender: FDA-Public Use
  Company Number: US-LEO PHARMA-304326

PATIENT
  Sex: Female

DRUGS (1)
  1. DAIVOBET [Suspect]
     Active Substance: BETAMETHASONE DIPROPIONATE\CALCIPOTRIENE
     Indication: PSORIASIS
     Route: 061
     Dates: start: 201707

REACTIONS (5)
  - Faeces discoloured [Recovered/Resolved]
  - Skin irritation [Recovered/Resolved]
  - Incorrect drug administration duration [Unknown]
  - Abdominal discomfort [Recovered/Resolved]
  - Pruritus [Recovered/Resolved]
